FAERS Safety Report 8870371 (Version 4)
Quarter: 2014Q1

REPORT INFORMATION
  Report Type: Spontaneous
  Country: US (occurrence: None)
  Receive Date: 20120426
  Receipt Date: 20130107
  Transmission Date: 20141002
  Serious: Yes (Other)
  Sender: FDA-Public Use
  Company Number: PHEH2012US004563

PATIENT
  Age: 57 Year
  Sex: Female
  Weight: 70.7 kg

DRUGS (1)
  1. GILENYA [Suspect]
     Indication: MULTIPLE SCLEROSIS
     Route: 048
     Dates: start: 20111107, end: 20120505

REACTIONS (4)
  - Dizziness [None]
  - Fatigue [None]
  - Multiple sclerosis relapse [None]
  - White blood cell count decreased [None]
